FAERS Safety Report 22242346 (Version 1)
Quarter: 2023Q2

REPORT INFORMATION
  Report Type: Spontaneous
  Country: CN (occurrence: CN)
  Receive Date: 20230422
  Receipt Date: 20230422
  Transmission Date: 20230722
  Serious: Yes (Other)
  Sender: FDA-Public Use
  Company Number: CN-MLMSERVICE-20230405-4210773-1

PATIENT
  Age: 26 Year
  Sex: Female

DRUGS (4)
  1. CISPLATIN [Suspect]
     Active Substance: CISPLATIN
     Indication: Metastases to lung
     Dosage: EVERY 3 WEEKS FOR 3 CYCLES
     Dates: start: 2021, end: 2021
  2. ETOPOSIDE [Suspect]
     Active Substance: ETOPOSIDE
     Indication: Metastases to lung
     Dosage: EVERY 3 WEEKS FOR 3 CYCLES
     Dates: start: 2021, end: 2021
  3. CISPLATIN [Suspect]
     Active Substance: CISPLATIN
     Indication: Gestational trophoblastic tumour
     Dosage: EVERY 3 WEEKS FOR 3 CYCLES
     Dates: start: 2021, end: 2021
  4. ETOPOSIDE [Suspect]
     Active Substance: ETOPOSIDE
     Indication: Gestational trophoblastic tumour
     Dosage: EVERY 3 WEEKS FOR 3 CYCLES
     Dates: start: 2021, end: 2021

REACTIONS (2)
  - Pharyngeal ulceration [Unknown]
  - Myelosuppression [Unknown]

NARRATIVE: CASE EVENT DATE: 20210101
